FAERS Safety Report 25671120 (Version 1)
Quarter: 2025Q3

REPORT INFORMATION
  Report Type: Spontaneous
  Country: US (occurrence: None)
  Receive Date: 20250811
  Receipt Date: 20250811
  Transmission Date: 20251020
  Serious: Yes (Disabling)
  Sender: FDA-CTU
  Company Number: None

PATIENT
  Age: 87 Year
  Sex: Male
  Weight: 64.35 kg

DRUGS (3)
  1. SULFAMETHOXAZOLE\TRIMETHOPRIM [Suspect]
     Active Substance: SULFAMETHOXAZOLE\TRIMETHOPRIM
     Indication: Biopsy prostate
     Dosage: FREQUENCY : DAILY;?
     Route: 048
  2. TAMSULOSIN [Concomitant]
     Active Substance: TAMSULOSIN
  3. prostagenics [Concomitant]

REACTIONS (3)
  - Circulatory collapse [None]
  - Movement disorder [None]
  - Depressed level of consciousness [None]

NARRATIVE: CASE EVENT DATE: 20250721
